FAERS Safety Report 5759165-1 (Version None)
Quarter: 2008Q2

REPORT INFORMATION
  Report Type: 
  Country: None (occurrence: None)
  Receive Date: 20080604
  Receipt Date: 20080523
  Transmission Date: 20081010
  Serious: Yes (Life-Threatening, Hospitalization)
  Sender: FDA-Public Use
  Company Number: GB-PFIZER INC-2008027637

PATIENT
  Age: 35 Year
  Sex: Male
  Weight: 76 kg

DRUGS (1)
  1. CHANTIX [Suspect]
     Indication: SMOKING CESSATION THERAPY
     Route: 048

REACTIONS (3)
  - DEPRESSION [None]
  - SUICIDAL BEHAVIOUR [None]
  - SUICIDE ATTEMPT [None]
